FAERS Safety Report 16184720 (Version 3)
Quarter: 2020Q1

REPORT INFORMATION
  Report Type: Report from Study
  Country: None (occurrence: AR)
  Receive Date: 20190411
  Receipt Date: 20200207
  Transmission Date: 20200409
  Serious: Yes (Other)
  Sender: FDA-Public Use
  Company Number: AR-ABBVIE-19K-007-2709681-00

PATIENT
  Sex: Female

DRUGS (3)
  1. HUMIRA [Suspect]
     Active Substance: ADALIMUMAB
     Indication: RHEUMATOID ARTHRITIS
     Route: 058
     Dates: start: 20161226
  2. FLUXAP [Concomitant]
     Indication: PRODUCT USED FOR UNKNOWN INDICATION
  3. CLONAZEPAN [Concomitant]
     Active Substance: CLONAZEPAM
     Indication: PRODUCT USED FOR UNKNOWN INDICATION
     Dosage: DIVIDED IN HALF IN THE MORNING AND ANOTHER HALF IN THE AFTERNOON

REACTIONS (8)
  - Dislocation of vertebra [Unknown]
  - Mobility decreased [Unknown]
  - Complication associated with device [Unknown]
  - Spinal fracture [Not Recovered/Not Resolved]
  - Gait inability [Unknown]
  - Wound infection [Unknown]
  - Pain [Unknown]
  - Spinal disorder [Unknown]

NARRATIVE: CASE EVENT DATE: 2019
